FAERS Safety Report 7157420-4 (Version None)
Quarter: 2010Q4

REPORT INFORMATION
  Report Type: 
  Country: None (occurrence: None)
  Receive Date: 20101214
  Receipt Date: 20101208
  Transmission Date: 20110411
  Serious: Yes (Other)
  Sender: FDA-Public Use
  Company Number: A0873019A

PATIENT
  Age: 54 Year
  Sex: Female

DRUGS (3)
  1. AVANDIA [Suspect]
     Route: 048
     Dates: start: 19990101, end: 19990101
  2. METFORMIN [Concomitant]
  3. LIPITOR [Concomitant]

REACTIONS (4)
  - CARDIAC FAILURE CONGESTIVE [None]
  - FATIGUE [None]
  - HEART RATE INCREASED [None]
  - OEDEMA PERIPHERAL [None]
